FAERS Safety Report 4732976-7 (Version None)
Quarter: 2005Q3

REPORT INFORMATION
  Report Type: 
  Country: None (occurrence: None)
  Receive Date: 20050802
  Receipt Date: 20050802
  Transmission Date: 20060218
  Serious: Yes (Hospitalization)
  Sender: FDA-Public Use
  Company Number: None

PATIENT
  Age: 87 Year
  Sex: Female
  Weight: 67.1324 kg

DRUGS (12)
  1. WARFARIN [Suspect]
     Indication: ANTICOAGULANT THERAPY
     Dosage: 5 MG PO DAILY
     Route: 048
     Dates: start: 20050425
  2. ENOXAPARIN SODIUM [Suspect]
     Indication: ANTICOAGULANT THERAPY
     Dosage: 1MG/KG SQ BID
     Route: 058
     Dates: start: 20050425
  3. ULTRAM [Concomitant]
  4. VICODIN [Concomitant]
  5. MIRALAX [Concomitant]
  6. COLACE [Concomitant]
  7. LANOXIN [Concomitant]
  8. LOVENOX [Concomitant]
  9. TYLENOL PM [Concomitant]
  10. SKELAXIN [Concomitant]
  11. COUMADIN [Concomitant]
  12. PROTONIX [Concomitant]

REACTIONS (3)
  - DUODENAL ULCER [None]
  - GASTROINTESTINAL HAEMORRHAGE [None]
  - SHOULDER PAIN [None]
